FAERS Safety Report 10245046 (Version 1)
Quarter: 2014Q2

REPORT INFORMATION
  Report Type: Spontaneous
  Country: US (occurrence: US)
  Receive Date: 20140618
  Receipt Date: 20140618
  Transmission Date: 20141212
  Serious: No
  Sender: FDA-Public Use
  Company Number: US-GALDERMA-US14001029

PATIENT
  Age: 44 Year
  Sex: Male

DRUGS (8)
  1. MIRVASO (BRIMONIDINE) TOPICAL GEL, 0.33% [Suspect]
     Indication: ROSACEA
     Dosage: 0.33%
     Route: 061
     Dates: start: 20140311, end: 20140313
  2. LAROCHE-POSEY TOLERAINE CLEANSER [Concomitant]
     Indication: THERAPEUTIC SKIN CARE TOPICAL
     Route: 061
     Dates: start: 2009
  3. LAROCHE TOLERAINE MOISTURIZER [Concomitant]
     Indication: DRY SKIN PROPHYLAXIS
     Route: 061
     Dates: start: 2009
  4. FREE AND CLEAR SHAMPOO [Concomitant]
     Indication: THERAPEUTIC SKIN CARE TOPICAL
     Route: 061
     Dates: start: 2008
  5. DOVE FREE AND CLEAR BAR SOAP [Concomitant]
     Indication: THERAPEUTIC SKIN CARE TOPICAL
     Route: 061
     Dates: start: 2004
  6. XOLEGEL [Concomitant]
     Indication: SEBORRHOEIC DERMATITIS
     Dates: start: 2013
  7. JASON TOOTHPASTE [Concomitant]
     Route: 048
  8. SOLAR TIZO 3 SUNSCREEN [Concomitant]
     Route: 061
     Dates: start: 2011

REACTIONS (6)
  - Rebound effect [Recovering/Resolving]
  - Condition aggravated [Recovering/Resolving]
  - Skin irritation [Recovering/Resolving]
  - Erythema [Recovering/Resolving]
  - Flushing [Recovering/Resolving]
  - Skin burning sensation [Recovering/Resolving]
